APPROVED DRUG PRODUCT: LEVOFLOXACIN
Active Ingredient: LEVOFLOXACIN
Strength: EQ 750MG/30ML (EQ 25MG/ML)
Dosage Form/Route: INJECTABLE;INJECTION
Application: A200560 | Product #002
Applicant: PHARMOBEDIENT CONSULTING LLC
Approved: Jun 20, 2011 | RLD: No | RS: No | Type: DISCN